FAERS Safety Report 14943343 (Version 9)
Quarter: 2019Q1

REPORT INFORMATION
  Report Type: Report from Study
  Country: US (occurrence: US)
  Receive Date: 20180528
  Receipt Date: 20190329
  Transmission Date: 20190417
  Serious: Yes (Other)
  Sender: FDA-Public Use
  Company Number: PHHO2017US007758

PATIENT
  Age: 42 Year
  Sex: Female
  Weight: 74 kg

DRUGS (2)
  1. GILENYA [Suspect]
     Active Substance: FINGOLIMOD HYDROCHLORIDE
     Indication: MULTIPLE SCLEROSIS
     Dosage: 0.5 MG, QD
     Route: 048
     Dates: start: 20170320, end: 20180327
  2. TERIFLUNOMIDE. [Suspect]
     Active Substance: TERIFLUNOMIDE
     Indication: PRODUCT USED FOR UNKNOWN INDICATION
     Dosage: UNK
     Route: 065
     Dates: start: 20180507

REACTIONS (19)
  - Pruritus [Unknown]
  - Depression [Recovered/Resolved]
  - Pain in extremity [Unknown]
  - Pain [Unknown]
  - Lymphopenia [Recovered/Resolved]
  - Alopecia [Unknown]
  - Constipation [Recovered/Resolved]
  - Osteoarthritis [Recovering/Resolving]
  - Skin depigmentation [Unknown]
  - Seborrhoeic keratosis [Unknown]
  - Uterine leiomyoma [Recovered/Resolved]
  - Dysmenorrhoea [Recovering/Resolving]
  - Osteochondrosis [Recovering/Resolving]
  - Paraesthesia [Unknown]
  - White blood cell count decreased [Unknown]
  - Headache [Recovered/Resolved]
  - Joint swelling [Unknown]
  - Haemangioma of skin [Unknown]
  - Tendonitis [Recovered/Resolved]

NARRATIVE: CASE EVENT DATE: 201703
